FAERS Safety Report 20168178 (Version 7)
Quarter: 2022Q3

REPORT INFORMATION
  Report Type: Report from Study
  Country: None (occurrence: US)
  Receive Date: 20211210
  Receipt Date: 20220920
  Transmission Date: 20221027
  Serious: Yes (Death, Hospitalization)
  Sender: FDA-Public Use
  Company Number: US-Jiangsu Hengrui Medicine Co., Ltd.-2122866

PATIENT
  Age: 70 Year
  Sex: Female

DRUGS (24)
  1. CYCLOPHOSPHAMIDE [Suspect]
     Active Substance: CYCLOPHOSPHAMIDE
     Indication: Acute myeloid leukaemia
     Route: 041
     Dates: start: 20210820
  2. FLUDARABINE [Suspect]
     Active Substance: FLUDARABINE PHOSPHATE
     Route: 041
     Dates: start: 20210820
  3. NKX-101 [Suspect]
     Active Substance: NKX-101
     Route: 041
     Dates: start: 20210827
  4. DAPSONE [Concomitant]
     Active Substance: DAPSONE
  5. COREG [Concomitant]
     Active Substance: CARVEDILOL
  6. RESTASIS [Concomitant]
     Active Substance: CYCLOSPORINE
  7. CARBOXYMETHYLCELLULOSE SODIUM [Concomitant]
     Active Substance: CARBOXYMETHYLCELLULOSE SODIUM
  8. HEPARIN SODIUM [Concomitant]
     Active Substance: HEPARIN SODIUM
  9. COMPAZINE [Concomitant]
     Active Substance: PROCHLORPERAZINE MALEATE
  10. SPIRONOLACTONE [Concomitant]
     Active Substance: SPIRONOLACTONE
  11. FUROSEMIDE [Concomitant]
     Active Substance: FUROSEMIDE
  12. KEPPRA [Concomitant]
     Active Substance: LEVETIRACETAM
  13. VITAMIN B12 [Concomitant]
     Active Substance: CYANOCOBALAMIN
  14. VALTREX [Concomitant]
     Active Substance: VALACYCLOVIR HYDROCHLORIDE
  15. TRAMADOL HYDROCHLORIDE [Concomitant]
     Active Substance: TRAMADOL HYDROCHLORIDE
  16. OXYCODONE HYDROCHLORIDE [Concomitant]
     Active Substance: OXYCODONE HYDROCHLORIDE
  17. DEFEROXAMINE [Concomitant]
     Active Substance: DEFEROXAMINE MESYLATE
  18. FLORIVA (CHOLECALCIFEROL\SODIUM FLUORIDE) [Concomitant]
     Active Substance: CHOLECALCIFEROL\SODIUM FLUORIDE
  19. CEFPODOXIME PROXETIL [Concomitant]
     Active Substance: CEFPODOXIME PROXETIL
  20. ATORVASTATIN CALCIUM [Concomitant]
     Active Substance: ATORVASTATIN CALCIUM
  21. VORICONAZOLE [Concomitant]
     Active Substance: VORICONAZOLE
  22. FLUOXETINE HYDROCHLORIDE [Concomitant]
     Active Substance: FLUOXETINE HYDROCHLORIDE
  23. PROTONIX [Concomitant]
     Active Substance: PANTOPRAZOLE SODIUM
  24. ASCORBIC ACID [Concomitant]
     Active Substance: ASCORBIC ACID

REACTIONS (3)
  - Pseudomonal sepsis [Fatal]
  - Pneumonia [Recovered/Resolved]
  - Febrile neutropenia [Recovered/Resolved]

NARRATIVE: CASE EVENT DATE: 20211022
